FAERS Safety Report 18174270 (Version 2)
Quarter: 2020Q3

REPORT INFORMATION
  Report Type: Report from Study
  Country: EG (occurrence: EG)
  Receive Date: 20200820
  Receipt Date: 20200904
  Transmission Date: 20201103
  Serious: Yes (Other)
  Sender: FDA-Public Use
  Company Number: NVSC2020EG222974

PATIENT
  Age: 25 Year
  Sex: Female

DRUGS (6)
  1. GAVISCON [Concomitant]
     Active Substance: ALUMINUM HYDROXIDE\MAGNESIUM CARBONATE
     Indication: PRODUCT USED FOR UNKNOWN INDICATION
     Dosage: UNK UNK, QID
     Route: 065
  2. GLIVEC [Suspect]
     Active Substance: IMATINIB MESYLATE
     Indication: CHRONIC MYELOID LEUKAEMIA
     Dosage: 400 MG, QD
     Route: 065
     Dates: start: 2006, end: 200907
  3. GLIVEC [Suspect]
     Active Substance: IMATINIB MESYLATE
     Dosage: UNK
     Route: 065
     Dates: start: 201004, end: 2011
  4. SIRDALUD [Concomitant]
     Active Substance: TIZANIDINE
     Indication: PRODUCT USED FOR UNKNOWN INDICATION
     Dosage: 1 DF, QD(WHEN RECOMMENDED)
     Route: 065
  5. OMEPRAZOLE. [Concomitant]
     Active Substance: OMEPRAZOLE
     Indication: PRODUCT USED FOR UNKNOWN INDICATION
     Dosage: UNK, BID
     Route: 065
  6. CELEBREX [Concomitant]
     Active Substance: CELECOXIB
     Indication: PRODUCT USED FOR UNKNOWN INDICATION
     Dosage: 1 DF, QD
     Route: 065

REACTIONS (4)
  - Maternal exposure during pregnancy [Unknown]
  - Polymerase chain reaction positive [Recovered/Resolved]
  - White blood cell count increased [Recovered/Resolved]
  - Normal newborn [Unknown]

NARRATIVE: CASE EVENT DATE: 200907
